APPROVED DRUG PRODUCT: DESOGEN
Active Ingredient: DESOGESTREL; ETHINYL ESTRADIOL
Strength: 0.15MG;0.03MG
Dosage Form/Route: TABLET;ORAL-28
Application: N020071 | Product #002
Applicant: ORGANON USA INC
Approved: Dec 10, 1992 | RLD: No | RS: No | Type: DISCN